FAERS Safety Report 13921953 (Version 1)
Quarter: 2017Q3

REPORT INFORMATION
  Report Type: Spontaneous
  Country: GB (occurrence: GB)
  Receive Date: 20170830
  Receipt Date: 20170830
  Transmission Date: 20171127
  Serious: Yes (Hospitalization)
  Sender: FDA-Public Use
  Company Number: GB-ALSI-201700277

PATIENT
  Age: 7 Decade
  Sex: Male

DRUGS (1)
  1. 100% OXYGEN [Suspect]
     Active Substance: OXYGEN
     Indication: PRODUCT USED FOR UNKNOWN INDICATION
     Route: 055

REACTIONS (4)
  - Burns second degree [Not Recovered/Not Resolved]
  - Burns first degree [Not Recovered/Not Resolved]
  - Thermal burn [Not Recovered/Not Resolved]
  - Intentional product misuse [Not Recovered/Not Resolved]
